FAERS Safety Report 11223086 (Version 1)
Quarter: 2015Q2

REPORT INFORMATION
  Report Type: Report from Study
  Country: IL (occurrence: IL)
  Receive Date: 20150626
  Receipt Date: 20150626
  Transmission Date: 20150821
  Serious: Yes (Death, Other)
  Sender: FDA-Public Use
  Company Number: IL-B.I. PHARMACEUTICALS,INC./RIDGEFIELD-2014-BI-43777BI

PATIENT
  Age: 77 Year
  Sex: Male
  Weight: 75 kg

DRUGS (4)
  1. BI 10773 [Suspect]
     Active Substance: EMPAGLIFLOZIN
     Indication: TYPE 2 DIABETES MELLITUS
     Dosage: 25 MG
     Route: 048
     Dates: start: 20130101, end: 20140410
  2. MICROPIRIN [Suspect]
     Active Substance: ASPIRIN
     Indication: CEREBROVASCULAR ACCIDENT
     Dosage: 100 MG
     Route: 048
     Dates: start: 20140901
  3. PLAVIX [Suspect]
     Active Substance: CLOPIDOGREL BISULFATE
     Indication: CEREBROVASCULAR ACCIDENT
     Dosage: 75 MG
     Route: 048
     Dates: start: 20140901
  4. PRADAXA [Suspect]
     Active Substance: DABIGATRAN ETEXILATE MESYLATE
     Indication: ATRIAL FIBRILLATION
     Dosage: 220 MG
     Route: 048
     Dates: start: 20140901

REACTIONS (5)
  - Haemorrhage intracranial [Fatal]
  - Pyrexia [Unknown]
  - Haematemesis [Unknown]
  - Acute kidney injury [Recovered/Resolved]
  - Ventricular fibrillation [Unknown]

NARRATIVE: CASE EVENT DATE: 20140826
